FAERS Safety Report 13499645 (Version 1)
Quarter: 2017Q2

REPORT INFORMATION
  Report Type: Spontaneous
  Country: VN (occurrence: VN)
  Receive Date: 20170501
  Receipt Date: 20170501
  Transmission Date: 20170830
  Serious: Yes (Other)
  Sender: FDA-Public Use
  Company Number: PHHY2015VN174432

PATIENT
  Age: 6 Year
  Sex: Male
  Weight: 29 kg

DRUGS (1)
  1. MEGION [Suspect]
     Active Substance: CEFTRIAXONE SODIUM
     Indication: PRODUCT USED FOR UNKNOWN INDICATION
     Dosage: 1.5 G, UNK
     Route: 065
     Dates: start: 20151030, end: 20151030

REACTIONS (4)
  - Viral upper respiratory tract infection [Recovered/Resolved]
  - Heart rate decreased [Recovered/Resolved]
  - Cyanosis [Recovered/Resolved]
  - Tachypnoea [Recovered/Resolved]

NARRATIVE: CASE EVENT DATE: 20151030
